FAERS Safety Report 5246717-0 (Version None)
Quarter: 2007Q1

REPORT INFORMATION
  Report Type: 
  Country: None (occurrence: None)
  Receive Date: 20070216
  Receipt Date: 20070209
  Transmission Date: 20070707
  Serious: Yes (Death)
  Sender: FDA-Public Use
  Company Number: 2007-154313-NL

PATIENT
  Age: 78 Year
  Sex: Female

DRUGS (3)
  1. MIRTAZAPINE [Suspect]
  2. PROPOXYPHENE HYDROCHLORIDE [Suspect]
  3. ALPRAZOLAM [Suspect]

REACTIONS (2)
  - ANGER [None]
  - COMPLETED SUICIDE [None]
